FAERS Safety Report 12288965 (Version 1)
Quarter: 2016Q2

REPORT INFORMATION
  Report Type: Report from Study
  Country: US (occurrence: US)
  Receive Date: 20160421
  Receipt Date: 20160421
  Transmission Date: 20160815
  Serious: Yes (Death)
  Sender: FDA-Public Use
  Company Number: US-ROCHE-1688931

PATIENT
  Age: 75 Year
  Sex: Male
  Weight: 101.24 kg

DRUGS (2)
  1. ESBRIET [Suspect]
     Active Substance: PIRFENIDONE
     Indication: IDIOPATHIC PULMONARY FIBROSIS
     Route: 048
     Dates: start: 201503
  2. ESBRIET [Suspect]
     Active Substance: PIRFENIDONE
     Route: 048
     Dates: start: 20150429

REACTIONS (2)
  - Cardiac arrest [Fatal]
  - Sunburn [Recovered/Resolved]

NARRATIVE: CASE EVENT DATE: 20160120
